FAERS Safety Report 5257974-9 (Version None)
Quarter: 2007Q1

REPORT INFORMATION
  Report Type: 
  Country: None (occurrence: None)
  Receive Date: 20070307
  Receipt Date: 20061130
  Transmission Date: 20070707
  Serious: Yes (Hospitalization)
  Sender: FDA-Public Use
  Company Number: US-GLAXOSMITHKLINE-A0628121A

PATIENT
  Age: 63 Year
  Sex: Male
  Weight: 89 kg

DRUGS (8)
  1. REQUIP [Suspect]
     Indication: PARKINSON'S DISEASE
     Dosage: 4MG THREE TIMES PER DAY
     Route: 048
  2. ARTANE [Concomitant]
     Dosage: .5MG THREE TIMES PER DAY
  3. ATENOLOL [Concomitant]
     Dosage: 25MG PER DAY
  4. LIPITOR [Concomitant]
     Dosage: 10MG PER DAY
  5. ASPIRIN [Concomitant]
     Dosage: 81MG PER DAY
  6. M.V.I. [Concomitant]
  7. PROTONIX [Concomitant]
     Dosage: 40MG PER DAY
  8. SINEMET [Concomitant]

REACTIONS (2)
  - ROAD TRAFFIC ACCIDENT [None]
  - SUDDEN ONSET OF SLEEP [None]
